FAERS Safety Report 17519314 (Version 1)
Quarter: 2020Q1

REPORT INFORMATION
  Report Type: Spontaneous
  Country: US (occurrence: US)
  Receive Date: 20200309
  Receipt Date: 20200309
  Transmission Date: 20200409
  Serious: Yes (Other)
  Sender: FDA-Public Use
  Company Number: US-MALLINCKRODT-T202000585

PATIENT
  Sex: Male
  Weight: 106 kg

DRUGS (2)
  1. H.P. ACTHAR [Suspect]
     Active Substance: CORTICOTROPIN
     Indication: NEPHROTIC SYNDROME
     Dosage: 80 UNITS/ 1 ML, ONCE WEEKLY
     Route: 030
     Dates: start: 20200122
  2. H.P. ACTHAR [Suspect]
     Active Substance: CORTICOTROPIN
     Indication: HYPOAESTHESIA
     Dosage: 80 UNITS/1 ML, WEEKLY FOR SIX MONTHS
     Route: 030

REACTIONS (1)
  - Blood glucose fluctuation [Not Recovered/Not Resolved]
